FAERS Safety Report 7141311-9 (Version None)
Quarter: 2010Q4

REPORT INFORMATION
  Report Type: 
  Country: None (occurrence: None)
  Receive Date: 20101122
  Receipt Date: 20101108
  Transmission Date: 20110411
  Serious: Yes (Hospitalization)
  Sender: FDA-Public Use
  Company Number: DSA_44112_2010

PATIENT
  Age: 69 Year
  Sex: Male

DRUGS (16)
  1. ENALAPRIL MALEATE [Suspect]
     Indication: PRODUCT USED FOR UNKNOWN INDICATION
     Dosage: (DF ORAL)
     Route: 048
  2. BLINDED THERAPY [Suspect]
     Indication: THROMBOSIS PROPHYLAXIS
     Dosage: (5 MG DAILY ORAL)
     Route: 048
     Dates: start: 20090906, end: 20091125
  3. LASIX [Concomitant]
  4. NORVASC [Concomitant]
  5. CLOPIDOGREL BISULFATE [Concomitant]
  6. AMITRIPTYLINE HCL [Concomitant]
  7. METFORMIN HCL [Concomitant]
  8. AMLODIPINE [Concomitant]
  9. ASPIRIN [Concomitant]
  10. ATORVASTATIN CALCIUM [Concomitant]
  11. BISOPROLOL FUMARATE [Concomitant]
  12. ENALAPRIL MALEATE [Concomitant]
  13. FUROSEMIDE [Concomitant]
  14. INSULIN GLARGINE [Concomitant]
  15. METOLAZONE [Concomitant]
  16. PANTOPRAZOLE [Concomitant]

REACTIONS (3)
  - ACUTE MYOCARDIAL INFARCTION [None]
  - ANGIOEDEMA [None]
  - CORONARY ARTERY DISEASE [None]
